FAERS Safety Report 15213350 (Version 1)
Quarter: 2018Q3

REPORT INFORMATION
  Report Type: Spontaneous
  Country: US (occurrence: US)
  Receive Date: 20180730
  Receipt Date: 20180730
  Transmission Date: 20181010
  Serious: No
  Sender: FDA-Public Use
  Company Number: US-TEVA-2018-US-932625

PATIENT
  Sex: Male

DRUGS (1)
  1. OCTREOTIDE ACETATE INJECTION [Suspect]
     Active Substance: OCTREOTIDE ACETATE
     Indication: DIARRHOEA
     Dosage: DOSE STRENGTH:  100 MCG/ML, 1 ML
     Route: 030
     Dates: start: 201803

REACTIONS (1)
  - Incorrect dose administered [Unknown]

NARRATIVE: CASE EVENT DATE: 201803
